FAERS Safety Report 9365783 (Version 2)
Quarter: 2013Q2

REPORT INFORMATION
  Report Type: Spontaneous
  Country: US (occurrence: US)
  Receive Date: 20130625
  Receipt Date: 20130626
  Transmission Date: 20140414
  Serious: Yes (Death)
  Sender: FDA-Public Use
  Company Number: US-TEVA-413784USA

PATIENT
  Sex: Female

DRUGS (3)
  1. ACTIQ [Suspect]
     Route: 048
  2. DILAUDID [Concomitant]
     Indication: CANCER PAIN
  3. METHADONE [Concomitant]
     Indication: CANCER PAIN

REACTIONS (1)
  - Death [Fatal]
